FAERS Safety Report 21729348 (Version 1)
Quarter: 2022Q4

REPORT INFORMATION
  Report Type: Spontaneous
  Country: PL (occurrence: PL)
  Receive Date: 20221214
  Receipt Date: 20221214
  Transmission Date: 20230112
  Serious: Yes (Other)
  Sender: FDA-Public Use
  Company Number: PL-002147023-NVSC2022PL286742

PATIENT
  Age: 21 Year
  Sex: Male

DRUGS (3)
  1. METHOTREXATE [Suspect]
     Active Substance: METHOTREXATE
     Indication: Psoriasis
     Dosage: 15 MG, QW
     Route: 065
     Dates: start: 2018
  2. COSENTYX [Suspect]
     Active Substance: SECUKINUMAB
     Indication: Psoriasis
     Dosage: UNK
     Route: 065
  3. CYCLOSPORINE [Suspect]
     Active Substance: CYCLOSPORINE
     Indication: Product used for unknown indication
     Dosage: 3.5 MG/KG (BODY MASS)
     Route: 065
     Dates: end: 2019

REACTIONS (7)
  - Gastrointestinal haemorrhage [Unknown]
  - Blood pressure abnormal [Unknown]
  - Hepatic enzyme abnormal [Unknown]
  - Hypercholesterolaemia [Unknown]
  - Weight increased [Unknown]
  - Psoriasis [Recovering/Resolving]
  - Drug ineffective [Recovered/Resolved]

NARRATIVE: CASE EVENT DATE: 20180101
